FAERS Safety Report 22601772 (Version 1)
Quarter: 2023Q2

REPORT INFORMATION
  Report Type: Spontaneous
  Country: US (occurrence: None)
  Receive Date: 20230613
  Receipt Date: 20230613
  Transmission Date: 20230722
  Serious: No
  Sender: FDA-Public Use
  Company Number: None

PATIENT
  Sex: Male

DRUGS (12)
  1. VOTRIENT [Suspect]
     Active Substance: PAZOPANIB HYDROCHLORIDE
     Indication: Renal cancer
     Dosage: OTHER FREQUENCY : QAM;?
     Route: 048
  2. AMLODIPINE [Concomitant]
     Active Substance: AMLODIPINE BESYLATE
  3. VITAMIN D3 [Concomitant]
     Active Substance: CHOLECALCIFEROL
  4. LEVOTHYROXINE [Suspect]
     Active Substance: LEVOTHYROXINE
  5. LORATADINE [Concomitant]
     Active Substance: LORATADINE
  6. MEGESTROL [Concomitant]
     Active Substance: MEGESTROL
  7. PRAVASTATIN [Concomitant]
     Active Substance: PRAVASTATIN
  8. DIOVAN [Concomitant]
     Active Substance: VALSARTAN
  9. VALSARTAN [Concomitant]
     Active Substance: VALSARTAN
  10. INLYTA [Concomitant]
     Active Substance: AXITINIB
  11. AZITHROMYCIN [Concomitant]
     Active Substance: AZITHROMYCIN
  12. CALCIUM [Concomitant]
     Active Substance: CALCIUM

REACTIONS (1)
  - Hospice care [None]
